FAERS Safety Report 8304917-7 (Version None)
Quarter: 2012Q2

REPORT INFORMATION
  Report Type: 
  Country: None (occurrence: None)
  Receive Date: 20120423
  Receipt Date: 20120413
  Transmission Date: 20120825
  Serious: Yes (Life-Threatening, Other)
  Sender: FDA-Public Use
  Company Number: JP-CELGENEUS-087-50794-12042272

PATIENT
  Sex: Male
  Weight: 47 kg

DRUGS (12)
  1. VIDAZA [Suspect]
     Dosage: 75 MILLIGRAM/SQ. METER
     Route: 058
     Dates: start: 20120110, end: 20120116
  2. LEVOFLOXACIN [Concomitant]
     Route: 065
     Dates: start: 20111209
  3. LENDORMIN [Concomitant]
     Route: 065
     Dates: start: 20111212
  4. TOKI SHIGYAKU KA GOSHUYU SHOKYO TO [Concomitant]
     Route: 065
     Dates: start: 20111212
  5. GRANISETRON HCL [Concomitant]
     Route: 065
     Dates: start: 20120110, end: 20120116
  6. VIDAZA [Suspect]
     Dosage: 75 MILLIGRAM/SQ. METER
     Route: 058
     Dates: start: 20111212, end: 20111217
  7. MAGMITT [Concomitant]
     Route: 065
     Dates: start: 20111214
  8. ITRACONAZOLE [Concomitant]
     Route: 065
     Dates: start: 20111209
  9. GOSHA JINKI GAN [Concomitant]
     Route: 065
     Dates: start: 20111212
  10. PREDNISOLONE [Concomitant]
     Route: 065
     Dates: start: 20120110, end: 20120116
  11. GRANISETRON HCL [Concomitant]
     Route: 065
     Dates: start: 20111212, end: 20111217
  12. PURSENNID [Concomitant]
     Route: 065
     Dates: start: 20111214

REACTIONS (3)
  - RED BLOOD CELL COUNT DECREASED [None]
  - ANAEMIA [None]
  - HAEMOGLOBIN DECREASED [None]
